FAERS Safety Report 4568392-0 (Version None)
Quarter: 2005Q1

REPORT INFORMATION
  Report Type: 
  Country: None (occurrence: None)
  Receive Date: 20050131
  Receipt Date: 20050117
  Transmission Date: 20050727
  Serious: Yes (Hospitalization)
  Sender: FDA-Public Use
  Company Number: 2005017121

PATIENT
  Age: 74 Year
  Sex: Male

DRUGS (12)
  1. SOLU-MEDROL [Suspect]
     Indication: ASTHMA
     Dosage: INTRAVENOUS
     Route: 042
  2. METHOTREXATE SODIUM [Concomitant]
  3. LANSOPRAZOLE [Concomitant]
  4. ALFACALCIDOL (ALFACALCIDOL) [Concomitant]
  5. VALSARTAN (VALSARTAN) [Concomitant]
  6. AMLODIPINE BESYLATE [Concomitant]
  7. REBAMIPIDE (REBAMIPIDE) [Concomitant]
  8. PREDNISOLONE [Concomitant]
  9. IPRATROPIUM BROMIDE [Concomitant]
  10. FAMOTIDINE [Concomitant]
  11. AMINOPHYLLIN [Concomitant]
  12. FUROSEMIDE (FUROSEMIDE) [Concomitant]

REACTIONS (2)
  - PLATELET COUNT DECREASED [None]
  - WHITE BLOOD CELL COUNT DECREASED [None]
